FAERS Safety Report 7407463-8 (Version None)
Quarter: 2011Q2

REPORT INFORMATION
  Report Type: 
  Country: None (occurrence: None)
  Receive Date: 20110411
  Receipt Date: 20110407
  Transmission Date: 20111010
  Serious: Yes (Other)
  Sender: FDA-Public Use
  Company Number: FR-CEPHALON-2009002686

PATIENT
  Sex: Female

DRUGS (1)
  1. MODAFINIL [Suspect]
     Indication: SOMNOLENCE
     Route: 048
     Dates: start: 20090101

REACTIONS (5)
  - JAUNDICE [None]
  - LIVER DISORDER [None]
  - ALANINE AMINOTRANSFERASE INCREASED [None]
  - BLOOD BILIRUBIN INCREASED [None]
  - ASPARTATE AMINOTRANSFERASE INCREASED [None]
